FAERS Safety Report 8586158-1 (Version None)
Quarter: 2012Q3

REPORT INFORMATION
  Report Type: 
  Country: None (occurrence: None)
  Receive Date: 20120810
  Receipt Date: 20120731
  Transmission Date: 20120928
  Serious: Yes (Life-Threatening)
  Sender: FDA-Public Use
  Company Number: CA-GLAXOSMITHKLINE-A0987784A

PATIENT
  Sex: Male

DRUGS (1)
  1. FLUTICASONE PROPIONATE [Suspect]
     Indication: PRODUCT USED FOR UNKNOWN INDICATION
     Dosage: 2PUFF TWICE PER DAY
     Route: 055

REACTIONS (3)
  - UNDERDOSE [None]
  - PRODUCT QUALITY ISSUE [None]
  - DYSPNOEA [None]
